FAERS Safety Report 7457634-X (Version None)
Quarter: 2011Q2

REPORT INFORMATION
  Report Type: 
  Country: None (occurrence: None)
  Receive Date: 20110504
  Receipt Date: 20110425
  Transmission Date: 20111010
  Serious: Yes (Hospitalization)
  Sender: FDA-Public Use
  Company Number: US-ROCHE-357633

PATIENT
  Sex: Female
  Weight: 73 kg

DRUGS (17)
  1. EPIVIR [Concomitant]
  2. RENAL CAPS [Concomitant]
  3. NIASPAN [Concomitant]
  4. ASPIRIN [Concomitant]
     Dosage: DRUG REPORTED AS BABY ASPIRIN
  5. COZAAR [Concomitant]
  6. VIREAD [Concomitant]
  7. LASIX [Concomitant]
  8. NEURONTIN [Concomitant]
  9. PRENATAL VITAMINS [Concomitant]
  10. LANTUS [Concomitant]
  11. NOVOLOG [Concomitant]
  12. FUZEON [Suspect]
     Route: 058
     Dates: start: 20031001
  13. CRIXIVAN [Concomitant]
     Route: 065
     Dates: end: 20040119
  14. ACYCLOVIR [Concomitant]
  15. BICITRA [Concomitant]
  16. HEPSERA [Concomitant]
  17. NORVASC [Concomitant]

REACTIONS (9)
  - TINNITUS [None]
  - INJECTION SITE INDURATION [None]
  - SKIN INFECTION [None]
  - GLUCOSE URINE PRESENT [None]
  - RENAL DISORDER [None]
  - WRONG TECHNIQUE IN DRUG USAGE PROCESS [None]
  - MUSCLE TWITCHING [None]
  - LIVER DISORDER [None]
  - CHEST PAIN [None]
